FAERS Safety Report 20756482 (Version 3)
Quarter: 2022Q2

REPORT INFORMATION
  Report Type: Report from Study
  Country: US (occurrence: US)
  Receive Date: 20220427
  Receipt Date: 20220523
  Transmission Date: 20220721
  Serious: Yes (Other)
  Sender: FDA-Public Use
  Company Number: US-BRISTOL-MYERS SQUIBB COMPANY-2022-027207

PATIENT
  Age: 78 Year
  Sex: Female
  Weight: 83.9 kg

DRUGS (1)
  1. ELIQUIS [Suspect]
     Active Substance: APIXABAN
     Indication: Thrombosis
     Dosage: DOSE : UNAVAILABLE (NOT PROVIDED);     FREQ : TWICE A DAY (EVERY 12HRS )
     Route: 048
     Dates: start: 202111

REACTIONS (3)
  - Tooth disorder [Unknown]
  - Tooth discolouration [Unknown]
  - Venous occlusion [Unknown]
